FAERS Safety Report 5199433-8 (Version None)
Quarter: 2006Q4

REPORT INFORMATION
  Report Type: 
  Country: None (occurrence: None)
  Receive Date: 20061016
  Receipt Date: 20060620
  Transmission Date: 20070319
  Serious: No
  Sender: FDA-Public Use
  Company Number: 2006SP002666

PATIENT
  Age: 69 Year
  Sex: Female
  Weight: 71.2147 kg

DRUGS (14)
  1. LUNESTA [Suspect]
     Indication: INSOMNIA
     Dosage: SEE IMAGE
     Route: 048
     Dates: start: 20050101, end: 20050101
  2. LUNESTA [Suspect]
     Indication: INSOMNIA
     Dosage: SEE IMAGE
     Route: 048
     Dates: start: 20050101, end: 20050101
  3. LUNESTA [Suspect]
     Indication: INSOMNIA
     Dosage: SEE IMAGE
     Route: 048
     Dates: end: 20060101
  4. ATENOLOL [Concomitant]
  5. PROZAC [Concomitant]
  6. TESSALON [Concomitant]
  7. ATORVASTATIN CALCIUM [Concomitant]
  8. LORTAB [Concomitant]
  9. FIORICET [Concomitant]
  10. ASPIRIN [Concomitant]
  11. ESTAZOLAM [Concomitant]
  12. NASACORT [Concomitant]
  13. REQUIP [Concomitant]
  14. STOOL SOFTENER [Concomitant]

REACTIONS (2)
  - DRUG INEFFECTIVE [None]
  - INSOMNIA [None]
